FAERS Safety Report 19477694 (Version 3)
Quarter: 2021Q4

REPORT INFORMATION
  Report Type: Report from Study
  Country: KR (occurrence: KR)
  Receive Date: 20210630
  Receipt Date: 20211008
  Transmission Date: 20220303
  Serious: Yes (Hospitalization)
  Sender: FDA-Public Use
  Company Number: KR-BIOGEN-2021BI01023451

PATIENT
  Age: 30 Year
  Sex: Male
  Weight: 115 kg

DRUGS (15)
  1. TECFIDERA [Suspect]
     Active Substance: DIMETHYL FUMARATE
     Indication: Relapsing-remitting multiple sclerosis
     Dosage: STARTING DOSE
     Route: 048
     Dates: start: 20200525, end: 20200531
  2. TECFIDERA [Suspect]
     Active Substance: DIMETHYL FUMARATE
     Dosage: MAINTENANCE DOSE
     Route: 048
     Dates: start: 20200601
  3. Cellion [Concomitant]
     Indication: Product used for unknown indication
     Route: 048
     Dates: start: 20201215, end: 20210125
  4. Allerginon [Concomitant]
     Indication: Product used for unknown indication
     Route: 048
     Dates: start: 20201215, end: 20210125
  5. Naitral [Concomitant]
     Indication: Product used for unknown indication
     Route: 062
     Dates: start: 20201215, end: 20210125
  6. METHYLPREDNISOLONE ACEPONATE [Concomitant]
     Active Substance: METHYLPREDNISOLONE ACEPONATE
     Indication: Product used for unknown indication
     Route: 062
     Dates: start: 20201215, end: 20210125
  7. Kalomin S [Concomitant]
     Indication: Product used for unknown indication
     Route: 048
     Dates: start: 20201223, end: 20210105
  8. Promac (NOS) [Concomitant]
     Indication: Prophylaxis
     Route: 048
     Dates: start: 20201223, end: 20210105
  9. Umckamin [Concomitant]
     Indication: Product used for unknown indication
     Route: 048
     Dates: start: 20201223, end: 20210105
  10. Noltec [Concomitant]
     Indication: Prophylaxis
     Route: 048
     Dates: start: 20201223, end: 20210105
  11. METOCLOPRAMIDE HYDROCHLORIDE [Concomitant]
     Active Substance: METOCLOPRAMIDE HYDROCHLORIDE
     Indication: Product used for unknown indication
     Route: 048
     Dates: start: 20200609, end: 20200611
  12. METOCLOPRAMIDE HYDROCHLORIDE [Concomitant]
     Active Substance: METOCLOPRAMIDE HYDROCHLORIDE
     Route: 048
     Dates: start: 20200609, end: 20200611
  13. Lamina-G [Concomitant]
     Indication: Prophylaxis
     Route: 048
     Dates: start: 20200610, end: 20200630
  14. LAFUTIDINE [Concomitant]
     Active Substance: LAFUTIDINE
     Indication: Prophylaxis
     Route: 048
     Dates: start: 20200609, end: 20200611
  15. HERBALS [Concomitant]
     Active Substance: HERBALS
     Indication: Prophylaxis
     Route: 048
     Dates: start: 20200613, end: 20200630

REACTIONS (2)
  - Hyperparathyroidism primary [Recovered/Resolved]
  - Productive cough [Recovered/Resolved]

NARRATIVE: CASE EVENT DATE: 20201120
